FAERS Safety Report 8071971-X (Version None)
Quarter: 2012Q1

REPORT INFORMATION
  Report Type: 
  Country: None (occurrence: None)
  Receive Date: 20120119
  Receipt Date: 20120109
  Transmission Date: 20120608
  Serious: Yes (Other)
  Sender: FDA-Public Use
  Company Number: 2012P1002473

PATIENT
  Age: 15 Year
  Sex: Male

DRUGS (2)
  1. HEPARIN [Suspect]
     Indication: OEDEMA
     Dosage: 50 MG;QD;IV
     Route: 042
  2. PREDNISOLONE [Suspect]
     Indication: OEDEMA
     Dosage: 1.0 MG/KG;QD;PO
     Route: 048

REACTIONS (1)
  - PRIAPISM [None]
